FAERS Safety Report 16297118 (Version 1)
Quarter: 2019Q2

REPORT INFORMATION
  Report Type: Spontaneous
  Country: PT (occurrence: PT)
  Receive Date: 20190510
  Receipt Date: 20190510
  Transmission Date: 20190711
  Serious: Yes (Other)
  Sender: FDA-Public Use
  Company Number: PT-BAXTER-2019BAX009159

PATIENT
  Age: 61 Year
  Weight: 61 kg

DRUGS (3)
  1. UROMITEXAN 400 MG/4ML [Suspect]
     Active Substance: MESNA
     Indication: CYSTITIS HAEMORRHAGIC
     Dosage: 400 MG 2 DOSES, COADMINISTRATION IN CYCLOPHOSPHAMIDE REGIMENS FOR THE PREVENTION OF HEMORRHAGIC CYST
     Route: 042
     Dates: start: 20190424, end: 20190424
  2. ENDOXAN [Suspect]
     Active Substance: CYCLOPHOSPHAMIDE
     Indication: IGA NEPHROPATHY
     Dosage: 750 MG SINGLE DOSE, IGA NEPHROPATHY, PULSE TREATMENT
     Route: 042
     Dates: start: 20190424, end: 20190424
  3. ONDANSETRON [Concomitant]
     Active Substance: ONDANSETRON
     Indication: PRODUCT USED FOR UNKNOWN INDICATION
     Route: 065

REACTIONS (1)
  - Face oedema [Recovering/Resolving]

NARRATIVE: CASE EVENT DATE: 20190424
